FAERS Safety Report 6274669-3 (Version None)
Quarter: 2009Q3

REPORT INFORMATION
  Report Type: 
  Country: None (occurrence: None)
  Receive Date: 20090717
  Receipt Date: 20090704
  Transmission Date: 20100115
  Serious: Yes (Disabling)
  Sender: FDA-Public Use
  Company Number: ADE2009-0711

PATIENT
  Age: 31 Year
  Sex: Female
  Weight: 55 kg

DRUGS (3)
  1. GABAPENTIN [Suspect]
     Indication: MIGRAINE WITH AURA
     Dosage: 1800MG - ORAL
     Route: 048
     Dates: start: 20080601, end: 20090101
  2. CITALOPRAM HYDROBROMIDE [Concomitant]
  3. LEVOTHYROXINE SODIUM [Concomitant]

REACTIONS (1)
  - HYPOTHERMIA [None]
